FAERS Safety Report 8946993 (Version 4)
Quarter: 2013Q2

REPORT INFORMATION
  Report Type: Spontaneous
  Country: GB (occurrence: GB)
  Receive Date: 20121205
  Receipt Date: 20130529
  Transmission Date: 20140414
  Serious: Yes (Disabling, Other)
  Sender: FDA-Public Use
  Company Number: GB-PFIZER INC-2012303161

PATIENT
  Age: 8 Decade
  Sex: Female

DRUGS (5)
  1. ATORVASTATIN CALCIUM [Suspect]
     Indication: HYPERCHOLESTEROLAEMIA
     Dosage: 20 MG, 1X/DAY, BEFORE BEDTIME
     Route: 048
     Dates: start: 2011, end: 201210
  2. ASPIRIN [Concomitant]
     Dosage: 75 MG, 1X/DAY
     Route: 048
  3. BISOPROLOL [Concomitant]
     Dosage: 5 MG, 1X/DAY
  4. RAMIPRIL [Concomitant]
     Dosage: 10 MG, UNK
  5. LATANOPROST [Concomitant]
     Dosage: 1 DROP IN EACH EYE PER DAY

REACTIONS (8)
  - Myalgia [Recovered/Resolved]
  - Muscular weakness [Recovered/Resolved]
  - Myalgia [Recovered/Resolved]
  - Musculoskeletal stiffness [Recovered/Resolved]
  - Joint stiffness [Recovered/Resolved]
  - Walking disability [Recovered/Resolved]
  - Decreased appetite [Unknown]
  - Fatigue [Unknown]
